FAERS Safety Report 20235392 (Version 1)
Quarter: 2021Q4

REPORT INFORMATION
  Report Type: Spontaneous
  Country: DE (occurrence: DE)
  Receive Date: 20211228
  Receipt Date: 20211228
  Transmission Date: 20220303
  Serious: Yes (Hospitalization)
  Sender: FDA-Public Use
  Company Number: DE-ADRED-07639-01

PATIENT
  Age: 78 Year
  Sex: Female
  Weight: 85 kg

DRUGS (9)
  1. HYDROCHLOROTHIAZIDE [Suspect]
     Active Substance: HYDROCHLOROTHIAZIDE
     Indication: Product used for unknown indication
     Dosage: 12.5 MILLIGRAM, ONCE A DAY (12.5 MG, 1-0-0-0, TABLETTEN)
     Route: 048
  2. ASPIRIN [Concomitant]
     Active Substance: ASPIRIN
     Indication: Product used for unknown indication
     Dosage: 100 MILLIGRAM, ONCE A DAY (100 MG, 0-1-0-0, TABLETTEN)
     Route: 048
  3. ATORVASTATIN [Concomitant]
     Active Substance: ATORVASTATIN
     Indication: Product used for unknown indication
     Dosage: 20 MILLIGRAM, ONCE A DAY ( (20 MG, 0-0-1-0, TABLETTEN)
     Route: 048
  4. AMLODIPINE\OLMESARTAN [Concomitant]
     Active Substance: AMLODIPINE\OLMESARTAN
     Indication: Product used for unknown indication
     Dosage: ONCE A DAY (10|40 MG, 1-0-0-0, TABLETTEN)
     Route: 048
  5. AMLODIPINE BESYLATE [Concomitant]
     Active Substance: AMLODIPINE BESYLATE
     Indication: Product used for unknown indication
     Dosage: 5 MILLIGRAM, ONCE A DAY (5 MG, 0-0-1-0, TABLETTEN)
     Route: 048
  6. DAPAGLIFLOZIN [Concomitant]
     Active Substance: DAPAGLIFLOZIN
     Indication: Product used for unknown indication
     Dosage: 5 MILLIGRAM, ONCE A DAY (5 MG, 1-0-0-0, TABLETTEN)
     Route: 048
  7. INSULIN HUMAN [Concomitant]
     Active Substance: INSULIN HUMAN
     Indication: Product used for unknown indication
     Dosage: 1 INTERNATIONAL UNIT, ONCE A DAY (1 IE, 0-0-0-8, FERTIGSPRITZEN)
     Route: 058
  8. PANTOPRAZOLE SODIUM [Concomitant]
     Active Substance: PANTOPRAZOLE SODIUM
     Indication: Product used for unknown indication
     Dosage: 20 MILLIGRAM, ONCE A DAY (20 MG, 1-0-0-0, RETARD-TABLETTEN)
     Route: 048
  9. SITAGLIPTIN [Concomitant]
     Active Substance: SITAGLIPTIN
     Indication: Product used for unknown indication
     Dosage: 100 MILLIGRAM, ONCE A DAY (100 MG, 1-0-0-0, TABLETTEN)
     Route: 048

REACTIONS (3)
  - Dizziness [Unknown]
  - Condition aggravated [Unknown]
  - Nausea [Unknown]
